FAERS Safety Report 8447976-3 (Version None)
Quarter: 2012Q2

REPORT INFORMATION
  Report Type: 
  Country: None (occurrence: None)
  Receive Date: 20120612
  Receipt Date: 20120604
  Transmission Date: 20120825
  Serious: Yes (Other)
  Sender: FDA-Public Use
  Company Number: 2012060030

PATIENT
  Sex: Female

DRUGS (10)
  1. DILAUDID [Suspect]
     Indication: NECK PAIN
     Dosage: 4 MG, ORAL
     Route: 048
  2. IBUPROFEN [Suspect]
     Indication: NECK PAIN
  3. CHLORDIAZEPOXIDE [Concomitant]
  4. DIAZEPAM [Suspect]
     Indication: MUSCLE RELAXANT THERAPY
     Dosage: 5 MG
  5. PRILOSEC [Concomitant]
  6. OXYCONTIN [Suspect]
     Indication: NECK PAIN
     Dosage: 40 MG
  7. PROMETHAZINE [Concomitant]
  8. CARISOPRODOL [Suspect]
     Indication: MUSCLE RELAXANT THERAPY
  9. OXYCODONE HCL [Suspect]
     Indication: NECK PAIN
     Dosage: 5 MG
  10. AMITRIPTYLINE HCL [Concomitant]

REACTIONS (9)
  - BENIGN NEOPLASM OF SPINAL CORD [None]
  - BACK DISORDER [None]
  - SPINAL OPERATION [None]
  - ELBOW OPERATION [None]
  - DRUG INEFFECTIVE [None]
  - ACCIDENT [None]
  - CARPAL TUNNEL DECOMPRESSION [None]
  - FOOT OPERATION [None]
  - INTERVERTEBRAL DISC OPERATION [None]
